FAERS Safety Report 5381036-3 (Version None)
Quarter: 2007Q2

REPORT INFORMATION
  Report Type: 
  Country: None (occurrence: None)
  Receive Date: 20070629
  Receipt Date: 20070122
  Transmission Date: 20071010
  Serious: Yes (Other)
  Sender: FDA-Public Use
  Company Number: US200611005017

PATIENT
  Sex: Male

DRUGS (9)
  1. HUMULIN R [Suspect]
     Dosage: 30 U, 2/D
     Dates: start: 19990101, end: 20030101
  2. HUMULIN N [Suspect]
     Dates: start: 19810101, end: 19990101
  3. HUMULIN R [Suspect]
     Indication: BLOOD GLUCOSE INCREASED
     Dosage: 4 U
     Dates: start: 19810101, end: 19990101
  4. HUMULIN R [Suspect]
     Indication: BLOOD GLUCOSE INCREASED
     Dosage: 4 U
     Dates: start: 20061128, end: 20061128
  5. HUMULIN R [Suspect]
     Indication: BLOOD GLUCOSE INCREASED
     Dosage: 4 U
     Dates: start: 20060101
  6. HUMALOG [Suspect]
     Indication: BLOOD GLUCOSE INCREASED
     Dates: start: 20050501, end: 20060201
  7. HUMULIN U [Suspect]
     Dates: start: 19810101, end: 19990101
  8. LANTUS [Concomitant]
  9. NOVOLIN R [Concomitant]

REACTIONS (7)
  - APHASIA [None]
  - BLOOD GLUCOSE DECREASED [None]
  - BLOOD GLUCOSE INCREASED [None]
  - DEPRESSED LEVEL OF CONSCIOUSNESS [None]
  - FEELING ABNORMAL [None]
  - HYPOKINESIA [None]
  - THERAPEUTIC RESPONSE DECREASED [None]
